FAERS Safety Report 23139244 (Version 1)
Quarter: 2023Q4

REPORT INFORMATION
  Report Type: Spontaneous
  Country: US (occurrence: None)
  Receive Date: 20231102
  Receipt Date: 20231102
  Transmission Date: 20240109
  Serious: Yes (Hospitalization)
  Sender: FDA-Public Use
  Company Number: None

PATIENT
  Sex: Female

DRUGS (3)
  1. SKYRIZI [Suspect]
     Active Substance: RISANKIZUMAB-RZAA
     Indication: Psoriasis
  2. LISINOPRIL [Concomitant]
  3. PARAGARD T 380A [Concomitant]
     Active Substance: COPPER

REACTIONS (4)
  - Caesarean section [None]
  - Psoriasis [None]
  - Therapy interrupted [None]
  - Stress [None]
